FAERS Safety Report 8432160-X (Version None)
Quarter: 2012Q2

REPORT INFORMATION
  Report Type: 
  Country: None (occurrence: None)
  Receive Date: 20120613
  Receipt Date: 20120604
  Transmission Date: 20120825
  Serious: Yes (Hospitalization, Other)
  Sender: FDA-Public Use
  Company Number: PHHY2012DE032800

PATIENT
  Sex: Male

DRUGS (4)
  1. MAGNESIUM PHOSPHATE [Concomitant]
     Route: 048
  2. NUTRITION SUPPLEMENTS [Concomitant]
  3. MAGNESIUM [Concomitant]
     Dosage: 300 MG, DAILY
     Route: 048
  4. GILENYA [Suspect]
     Indication: MULTIPLE SCLEROSIS
     Dosage: 0.5 MG, QD
     Route: 048
     Dates: end: 20120503

REACTIONS (5)
  - GAMMA-GLUTAMYLTRANSFERASE INCREASED [None]
  - INTESTINAL PERFORATION [None]
  - LYMPHOCYTE COUNT DECREASED [None]
  - CHOLELITHIASIS [None]
  - TRANSAMINASES INCREASED [None]
